FAERS Safety Report 8091972 (Version 4)
Quarter: 2015Q2

REPORT INFORMATION
  Report Type: Report from Study
  Country: DE (occurrence: DE)
  Receive Date: 20110816
  Receipt Date: 20150505
  Transmission Date: 20150821
  Serious: Yes (Hospitalization)
  Sender: FDA-Public Use
  Company Number: DE-ROCHE-796814

PATIENT
  Age: 64 Year
  Sex: Male
  Weight: 76 kg

DRUGS (4)
  1. IRINOTECAN [Concomitant]
     Active Substance: IRINOTECAN
     Indication: COLON CANCER METASTATIC
     Dosage: 2 ND CYCLE ?LAST ADMINISTARATION PRIOR TO EVENT ON 18/JUL/2011
     Route: 042
     Dates: start: 20110428, end: 20110809
  2. 5-FU [Concomitant]
     Active Substance: FLUOROURACIL
     Indication: COLON CANCER METASTATIC
     Dosage: 2 ND CYCLE ?LAST ADMINISTARATION PRIOR TO EVENT ON 18/JUL/2011
     Route: 042
     Dates: start: 20110428, end: 20110809
  3. BEVACIZUMAB [Suspect]
     Active Substance: BEVACIZUMAB
     Indication: COLON CANCER METASTATIC
     Dosage: 2 ND CYCLE ?LAST ADMINISTARATION PRIOR TO EVENT ON 18/JUL/2011
     Route: 042
     Dates: start: 20110428, end: 20110704
  4. FOLINIC ACID [Concomitant]
     Active Substance: LEUCOVORIN
     Indication: COLON CANCER METASTATIC
     Dosage: 2 ND CYCLE ?LAST ADMINISTARATION PRIOR TO EVENT ON 18/JUL/2011
     Route: 042
     Dates: start: 20110428, end: 20110809

REACTIONS (5)
  - Neoplasm progression [Not Recovered/Not Resolved]
  - Arthralgia [Not Recovered/Not Resolved]
  - Renal failure [Not Recovered/Not Resolved]
  - Groin pain [Not Recovered/Not Resolved]
  - Hospitalisation [Unknown]

NARRATIVE: CASE EVENT DATE: 20110430
